FAERS Safety Report 11063266 (Version 1)
Quarter: 2015Q2

REPORT INFORMATION
  Report Type: Spontaneous
  Country: US (occurrence: US)
  Receive Date: 20150424
  Receipt Date: 20150424
  Transmission Date: 20150821
  Serious: No
  Sender: FDA-Public Use
  Company Number: US-ALKERMES INC.-ALK-2014-003535

PATIENT

DRUGS (1)
  1. VIVITROL [Suspect]
     Active Substance: NALTREXONE
     Indication: DRUG DEPENDENCE
     Dosage: 380 MG, UNK
     Route: 030
     Dates: start: 20140905

REACTIONS (7)
  - Insomnia [Recovering/Resolving]
  - Drug administration error [Recovered/Resolved]
  - Feeling abnormal [Recovering/Resolving]
  - Restless legs syndrome [Recovering/Resolving]
  - Drug withdrawal syndrome [Recovered/Resolved]
  - Hyperhidrosis [Recovering/Resolving]
  - Muscle spasms [Recovering/Resolving]

NARRATIVE: CASE EVENT DATE: 20140905
